FAERS Safety Report 9206039 (Version 1)
Quarter: 2013Q2

REPORT INFORMATION
  Report Type: Spontaneous
  Country: FR (occurrence: FR)
  Receive Date: 20130403
  Receipt Date: 20130403
  Transmission Date: 20140414
  Serious: Yes (Other)
  Sender: FDA-Public Use
  Company Number: FR-JNJFOC-20130317241

PATIENT
  Sex: Female

DRUGS (6)
  1. DOXORUBICIN [Suspect]
     Indication: SARCOMA UTERUS
     Dosage: DAY 1
     Route: 042
  2. IFOSFAMIDE [Suspect]
     Indication: SARCOMA UTERUS
     Dosage: ON DAY 1 AND 2;
     Route: 065
  3. MESNA [Suspect]
     Indication: SARCOMA UTERUS
     Dosage: 0N DAY 1 AND 2
     Route: 065
  4. CISPLATIN [Suspect]
     Indication: SARCOMA UTERUS
     Dosage: ON DAY 3
     Route: 065
  5. LENOGRASTIM [Suspect]
     Indication: SARCOMA UTERUS
     Dosage: DAILY ON DAYS 7-14
     Route: 065
  6. RADIOTHERAPY [Suspect]
     Indication: SARCOMA UTERUS
     Dosage: 45 GRAYS IN 5 WEEKS, STARTING 4 WEEKS AFTER LAST ADMIN OF CHEMOTHERAPY
     Route: 065

REACTIONS (2)
  - Gastrointestinal toxicity [Unknown]
  - Off label use [Unknown]
